FAERS Safety Report 7314971-7 (Version None)
Quarter: 2011Q1

REPORT INFORMATION
  Report Type: 
  Country: None (occurrence: None)
  Receive Date: 20110225
  Receipt Date: 20100223
  Transmission Date: 20110831
  Serious: Yes (Other)
  Sender: FDA-Public Use
  Company Number: US-MYLANLABS-2010S1003152

PATIENT
  Sex: Female

DRUGS (3)
  1. CLARAVIS [Suspect]
     Indication: ACNE
     Route: 048
     Dates: start: 20050201, end: 20050501
  2. ACCUTANE [Suspect]
     Indication: ACNE
     Route: 048
     Dates: start: 20010501, end: 20010601
  3. AMNESTEEM [Suspect]
     Indication: ACNE
     Route: 048
     Dates: start: 20050601, end: 20050801

REACTIONS (1)
  - INFLAMMATORY BOWEL DISEASE [None]
